FAERS Safety Report 6006594-7 (Version None)
Quarter: 2008Q4

REPORT INFORMATION
  Report Type: 
  Country: None (occurrence: None)
  Receive Date: 20081217
  Receipt Date: 20081210
  Transmission Date: 20090506
  Serious: Yes (Death)
  Sender: FDA-Public Use
  Company Number: FI-BRISTOL-MYERS SQUIBB COMPANY-14431654

PATIENT
  Age: 53 Year
  Sex: Male

DRUGS (18)
  1. ABILIFY [Suspect]
     Indication: SCHIZOPHRENIA
     Dosage: ALSO TAKEN AS IM 19, 20, 29-, 30-MAY-2008,ON 01,03,04,06-10JUN
     Route: 030
     Dates: start: 20080614
  2. ABILIFY [Suspect]
     Route: 048
     Dates: start: 20080519, end: 20080520
  3. LEPONEX [Suspect]
     Dosage: STARTED AS 50MG+300MGPO 14-22MAY,100MG+300MG 22MAY-10JUN, 300MG 11-14JUN08.
     Route: 048
     Dates: start: 20080514, end: 20080614
  4. HALOPERIDOL [Suspect]
     Dosage: 2MG FROM 18-29MAY08.
     Route: 048
     Dates: start: 20080514, end: 20080519
  5. ZYPREXA [Suspect]
     Dosage: STARTED AS 10MG/D 11-14JUN,20/D 13,14JUN08.
     Route: 030
     Dates: start: 20080611, end: 20080614
  6. CISORDINOL [Suspect]
     Dosage: 100MG (50 MG/ML INJECTION 1 ML) INTRAMUSCULARLY FROM 10-11-JUN-2008,14-JUN-2008 TO 15-JUN-2008.
     Route: 030
     Dates: start: 20080614, end: 20080615
  7. RISPERIDONE [Suspect]
     Route: 048
     Dates: start: 20080610, end: 20080614
  8. ATIVAN [Concomitant]
     Dosage: 1DF=4MG MAX2/VRK TARV MG14JUN,4MG MAX3/VRK TARV MG19-20MAY,4MG MAX4/VRK TARV MG 20MAY-14,16JUN08
     Route: 030
     Dates: start: 20080519
  9. OMEPRAZOLE [Concomitant]
     Dosage: 40MG FROM 31MAY-11JUN AND FROM 14JUN08.
     Route: 048
     Dates: start: 20080531
  10. LAEVOLAC [Concomitant]
     Route: 048
     Dates: start: 20080531, end: 20080609
  11. GAVISCON [Concomitant]
     Route: 048
     Dates: start: 20080603, end: 20080609
  12. LEVOTHYROXINE SODIUM [Concomitant]
     Dosage: 1 DF = 1.5TBL OF 0.1MG.
     Route: 048
     Dates: start: 20080514
  13. DIAPAM [Concomitant]
     Dosage: 10MG PO 18-19MAY08.
     Route: 048
     Dates: start: 20080526, end: 20080602
  14. TENOX [Concomitant]
     Dosage: 20MG 14-19MAY08.
     Route: 048
     Dates: start: 20080522, end: 20080602
  15. PROPRAL [Concomitant]
     Route: 048
     Dates: start: 20080514, end: 20080609
  16. ACETAMINOPHEN [Concomitant]
     Route: 048
     Dates: start: 20080603, end: 20080614
  17. ATROVENT [Concomitant]
     Dosage: 1 DOSAGE FORM = 1 SUIHKE AT NT.
     Dates: start: 20080514, end: 20080610
  18. TEMESTA [Concomitant]
     Dosage: 1 DOSAGE FORM = 1-4MG X 3TARV MG.
     Route: 048
     Dates: start: 20080519, end: 20080614

REACTIONS (2)
  - CARDIOMYOPATHY [None]
  - ELECTROCARDIOGRAM QT PROLONGED [None]
